FAERS Safety Report 13243364 (Version 1)
Quarter: 2017Q1

REPORT INFORMATION
  Report Type: Spontaneous
  Country: GB (occurrence: GB)
  Receive Date: 20170217
  Receipt Date: 20170217
  Transmission Date: 20170428
  Serious: Yes (Life-Threatening)
  Sender: FDA-Public Use
  Company Number: GB-PFIZER INC-2016574085

PATIENT
  Age: 39 Year
  Sex: Female

DRUGS (7)
  1. SYNAREL [Suspect]
     Active Substance: NAFARELIN ACETATE
     Indication: MENSTRUAL CYCLE MANAGEMENT
     Dosage: UNK
  2. PEPPERMINT OIL [Concomitant]
     Active Substance: PEPPERMINT OIL
     Indication: IRRITABLE BOWEL SYNDROME
     Route: 048
  3. PROVERA [Concomitant]
     Active Substance: MEDROXYPROGESTERONE ACETATE
     Indication: MENSTRUAL CYCLE MANAGEMENT
     Dosage: 5 MG, UNK
     Route: 048
     Dates: start: 20161026
  4. MEBEVERINE [Concomitant]
     Active Substance: MEBEVERINE
     Indication: IRRITABLE BOWEL SYNDROME
     Dosage: 135 MG, 3X/DAY
     Route: 048
  5. QUETIAPINE. [Concomitant]
     Active Substance: QUETIAPINE
     Indication: BIPOLAR DISORDER
     Dosage: 300 MG, DAILY
     Route: 048
  6. FLUCLOXACILLIN [Interacting]
     Active Substance: FLUCLOXACILLIN
     Indication: LOWER RESPIRATORY TRACT INFECTION
     Dosage: 500 MG, 4X/DAY
     Route: 048
     Dates: start: 20161118, end: 20161125
  7. OMEPRAZOLE. [Concomitant]
     Active Substance: OMEPRAZOLE
     Indication: GASTRITIS
     Dosage: 20 MG, DAILY
     Route: 048

REACTIONS (3)
  - Drug interaction [Recovered/Resolved]
  - Suicidal behaviour [Recovered/Resolved]
  - Drug ineffective for unapproved indication [Recovered/Resolved]
